FAERS Safety Report 9296178 (Version 2)
Quarter: 2013Q2

REPORT INFORMATION
  Report Type: Spontaneous
  Country: IT (occurrence: IT)
  Receive Date: 20130517
  Receipt Date: 20130627
  Transmission Date: 20140414
  Serious: Yes (Hospitalization)
  Sender: FDA-Public Use
  Company Number: IT-JNJFOC-20130506691

PATIENT
  Age: 35 Year
  Sex: Male

DRUGS (3)
  1. HALDOL DECANOAS [Suspect]
     Indication: MAJOR DEPRESSION
     Route: 030
     Dates: start: 20110101, end: 20130502
  2. AZATHIOPRINE [Suspect]
     Indication: MULTIPLE SCLEROSIS
     Route: 048
     Dates: start: 20110101, end: 20130502
  3. ZYPREXA [Suspect]
     Indication: MAJOR DEPRESSION
     Route: 048
     Dates: start: 20110101, end: 20130502

REACTIONS (3)
  - Pancytopenia [Recovered/Resolved]
  - Jaundice [Recovered/Resolved]
  - Off label use [Recovered/Resolved]
